FAERS Safety Report 6512455-7 (Version None)
Quarter: 2009Q4

REPORT INFORMATION
  Report Type: 
  Country: None (occurrence: None)
  Receive Date: 20091222
  Receipt Date: 20091216
  Transmission Date: 20100525
  Serious: Yes (Other)
  Sender: FDA-Public Use
  Company Number: JP-ABBOTT-09P-087-0613371-00

PATIENT
  Age: 32 Year
  Sex: Female

DRUGS (5)
  1. KALETRA [Suspect]
     Indication: HIV INFECTION
  2. KALETRA [Suspect]
     Route: 048
  3. KALETRA [Suspect]
     Route: 048
  4. ZIDOVUDINE [Suspect]
     Indication: HIV INFECTION
  5. LAMIVUDINE [Suspect]
     Indication: HIV INFECTION

REACTIONS (2)
  - DIARRHOEA [None]
  - PREMATURE RUPTURE OF MEMBRANES [None]
